FAERS Safety Report 16089874 (Version 1)
Quarter: 2019Q1

REPORT INFORMATION
  Report Type: Spontaneous
  Country: US (occurrence: US)
  Receive Date: 20190319
  Receipt Date: 20190319
  Transmission Date: 20190418
  Serious: No
  Sender: FDA-Public Use
  Company Number: US-SA-2019SA071378

PATIENT

DRUGS (5)
  1. SILDENAFIL CITRATE. [Suspect]
     Active Substance: SILDENAFIL CITRATE
     Dosage: 3 DF, TID
  2. PROMETHAZINE [Suspect]
     Active Substance: PROMETHAZINE\PROMETHAZINE HYDROCHLORIDE
  3. LOVENOX [Suspect]
     Active Substance: ENOXAPARIN SODIUM
  4. CODEINE SALT NOT SPECIFIED [Suspect]
     Active Substance: CODEINE
  5. ENALAPRIL MALEATE. [Suspect]
     Active Substance: ENALAPRIL MALEATE

REACTIONS (1)
  - Drug hypersensitivity [Unknown]
